FAERS Safety Report 4317829-0 (Version None)
Quarter: 2004Q1

REPORT INFORMATION
  Report Type: 
  Country: None (occurrence: None)
  Receive Date: 20040312
  Receipt Date: 20040305
  Transmission Date: 20041129
  Serious: Yes (Other)
  Sender: FDA-Public Use
  Company Number: 2004197074US

PATIENT
  Age: 42 Year
  Sex: Male

DRUGS (3)
  1. CALAN [Suspect]
     Indication: SUPRAVENTRICULAR TACHYCARDIA
  2. CARDIZEM [Suspect]
     Indication: SUPRAVENTRICULAR TACHYCARDIA
  3. NIFEDIPINE [Suspect]
     Indication: SUPRAVENTRICULAR TACHYCARDIA

REACTIONS (11)
  - ACIDOSIS [None]
  - ACUTE MYOCARDIAL INFARCTION [None]
  - BLOOD CREATINE PHOSPHOKINASE INCREASED [None]
  - BRADYCARDIA [None]
  - BUNDLE BRANCH BLOCK LEFT [None]
  - CARDIAC VENTRICULOGRAM LEFT ABNORMAL [None]
  - HYPOTENSION [None]
  - MEDICATION ERROR [None]
  - OVERDOSE [None]
  - PULMONARY OEDEMA [None]
  - VENTRICULAR DYSFUNCTION [None]
